FAERS Safety Report 5402349-2 (Version None)
Quarter: 2007Q3

REPORT INFORMATION
  Report Type: 
  Country: None (occurrence: None)
  Receive Date: 20070801
  Receipt Date: 20070723
  Transmission Date: 20080115
  Serious: Yes (Death, Other)
  Sender: FDA-Public Use
  Company Number: US-ELI_LILLY_AND_COMPANY-US200703006428

PATIENT
  Age: 45 Year
  Sex: Female

DRUGS (2)
  1. XIGRIS [Suspect]
     Indication: SEPSIS
     Route: 042
     Dates: start: 20070324
  2. ANTIBIOTICS [Concomitant]

REACTIONS (1)
  - HAEMORRHAGE INTRACRANIAL [None]
